FAERS Safety Report 26024734 (Version 1)
Quarter: 2025Q4

REPORT INFORMATION
  Report Type: Spontaneous
  Country: JP (occurrence: JP)
  Receive Date: 20251111
  Receipt Date: 20251111
  Transmission Date: 20260117
  Serious: Yes (Other)
  Sender: GLAXOSMITHKLINE
  Company Number: JP-GSK-JP2025128907

PATIENT
  Sex: Male

DRUGS (8)
  1. MOMELOTINIB [Suspect]
     Active Substance: MOMELOTINIB
     Indication: Myelofibrosis
     Dosage: 200 MG, 1D
  2. ZOVIRAX [Suspect]
     Active Substance: ACYCLOVIR
     Dosage: UNK
  3. SULFAMETHOXAZOLE\TRIMETHOPRIM [Concomitant]
     Active Substance: SULFAMETHOXAZOLE\TRIMETHOPRIM
     Dosage: UNK
  4. PREDONINE [Concomitant]
     Active Substance: PREDNISOLONE
     Dosage: UNK
  5. VONOPRAZAN FUMARATE [Concomitant]
     Active Substance: VONOPRAZAN FUMARATE
     Dosage: UNK
  6. ASPIRIN [Concomitant]
     Active Substance: ASPIRIN
     Dosage: UNK
  7. EDOXABAN TOSYLATE [Concomitant]
     Active Substance: EDOXABAN TOSYLATE
     Dosage: UNK
  8. SODIUM FERROUS CITRATE [Concomitant]
     Active Substance: SODIUM FERROUS CITRATE
     Dosage: UNK

REACTIONS (2)
  - Anaemia [Recovering/Resolving]
  - Activities of daily living decreased [Recovering/Resolving]

NARRATIVE: CASE EVENT DATE: 20250917
